FAERS Safety Report 5626396-0 (Version None)
Quarter: 2008Q1

REPORT INFORMATION
  Report Type: 
  Country: None (occurrence: None)
  Receive Date: 20080214
  Receipt Date: 20080205
  Transmission Date: 20080703
  Serious: Yes (Death, Hospitalization)
  Sender: FDA-Public Use
  Company Number: US-ROCHE-413569

PATIENT
  Age: 68 Year
  Sex: Female
  Weight: 50.6 kg

DRUGS (31)
  1. CAPECITABINE [Suspect]
     Indication: BREAST CANCER
     Dosage: DAYS 1 - 14 EACH CYCLE.
     Route: 048
     Dates: start: 20050714, end: 20050809
  2. TAXOTERE [Suspect]
     Indication: BREAST CANCER
     Dosage: DOSE EQUATES TO 112.5 MG
     Route: 042
     Dates: start: 20050714, end: 20050809
  3. CALTRATE [Concomitant]
     Route: 048
  4. VITAMIN E [Concomitant]
     Route: 048
  5. MULTIVITAMINES/MULTIMINERAL [Concomitant]
     Route: 048
     Dates: start: 20050101
  6. ALEVE [Concomitant]
     Indication: ARTHRITIS
     Dosage: TOTAL DAILY DOSE REPORTED AS 1 - 2 PRN
     Route: 048
     Dates: start: 20000101
  7. RESTORIL [Concomitant]
     Indication: INSOMNIA
     Dosage: DOSE TAKEN AT BEDTIME
     Route: 048
     Dates: start: 20050301, end: 20050622
  8. COMPAZINE [Concomitant]
     Route: 048
     Dates: start: 20050420, end: 20050803
  9. DECADRON [Concomitant]
     Indication: PROPHYLAXIS
     Dosage: DOSE ADMINISTERED 30 MINUTES PRIOR TO ANY DOCETAXEL
     Route: 042
     Dates: start: 20050420, end: 20050803
  10. KYTRIL [Concomitant]
     Indication: PROPHYLAXIS
     Dosage: ROUTE ALSO REPORTED AS ORAL. DOSE FREQUENCY REPORTED AS ^EVERY CHEMOTHERAPY^ AND 1 MG PRN.
     Route: 042
     Dates: start: 20050420, end: 20050803
  11. EMEND [Concomitant]
     Dosage: DOSE FREQUENCY REPORTED AS ^EVERY CHEMOTHERAPY^
     Route: 048
     Dates: start: 20050420, end: 20050803
  12. AMBIEN [Concomitant]
     Indication: INSOMNIA
     Dosage: DOSE TAKEN AT BEDTIME
     Route: 048
     Dates: start: 20050622, end: 20050622
  13. NEULASTA [Concomitant]
     Indication: PROPHYLAXIS
     Route: 058
     Dates: start: 20050512, end: 20050807
  14. DECADRON [Concomitant]
     Dosage: DOSE GIVEN NIGHT BEFORE DOCETAXEL ADMINISTRATION
     Route: 048
     Dates: start: 20050512, end: 20050803
  15. ARANESP [Concomitant]
     Route: 042
     Dates: start: 20050803, end: 20050803
  16. TYLENOL (CAPLET) [Concomitant]
     Indication: PROPHYLAXIS
     Route: 048
     Dates: start: 20050714, end: 20050714
  17. COMPAZINE [Concomitant]
     Indication: NAUSEA
     Dosage: PRN
     Route: 048
     Dates: start: 20050807, end: 20050809
  18. POTASSIUM CHLORIDE [Concomitant]
     Indication: DEHYDRATION
     Dosage: TOTAL DAILY DOSE REPORTED AS 175 ML/HOUR
     Route: 042
     Dates: start: 20050809, end: 20050809
  19. CARDIZEM [Concomitant]
     Route: 048
     Dates: start: 20050809, end: 20050809
  20. 1 CONCOMITANT DRUG [Concomitant]
     Dosage: TOTAL DAILY DOSE = 10MG/HOUR.  REPORTED AS DITHIAZOM
     Route: 042
     Dates: start: 20050809, end: 20050810
  21. NS [Concomitant]
     Route: 042
     Dates: start: 20050809, end: 20050820
  22. PHENERGAN HCL [Concomitant]
     Route: 042
     Dates: start: 20050810, end: 20050810
  23. CEFTAZIDIME [Concomitant]
     Route: 042
     Dates: start: 20050810, end: 20050819
  24. FLAGYL [Concomitant]
     Route: 042
     Dates: start: 20050810, end: 20050814
  25. LOMOTIL [Concomitant]
     Route: 048
     Dates: start: 20050810, end: 20050815
  26. POTASSIUM CHLORIDE [Concomitant]
     Route: 042
     Dates: start: 20050810, end: 20050818
  27. DEXTROSE 5% IN WATER [Concomitant]
     Dosage: TOTAL DAILY DOSE = 15 ML/HOUR
     Route: 042
     Dates: start: 20050810, end: 20050816
  28. SODIUM CHLORIDE [Concomitant]
     Dosage: TOTAL DAILY DOSE = 250 ML/HOUR
     Route: 042
     Dates: start: 20050810, end: 20050819
  29. SODIUM BICARBONATE [Concomitant]
     Route: 042
     Dates: start: 20050810, end: 20050818
  30. NOREPINEPHRINE [Concomitant]
     Dosage: TOTAL DAILY DOSE = 5 MG/KG/MIN
     Route: 042
     Dates: start: 20050810, end: 20050819
  31. VANCOMYCIN [Concomitant]
     Route: 042
     Dates: start: 20050810, end: 20050810

REACTIONS (6)
  - ANOREXIA [None]
  - DEHYDRATION [None]
  - DIARRHOEA [None]
  - ORAL INTAKE REDUCED [None]
  - SEPSIS [None]
  - VOMITING [None]
